FAERS Safety Report 21865997 (Version 1)
Quarter: 2023Q1

REPORT INFORMATION
  Report Type: Report from Study
  Country: US (occurrence: US)
  Receive Date: 20230116
  Receipt Date: 20230116
  Transmission Date: 20230417
  Serious: Yes (Hospitalization)
  Sender: FDA-Public Use
  Company Number: US-BEH-2023153961

PATIENT
  Age: 71 Year
  Sex: Female
  Weight: 36.281 kg

DRUGS (1)
  1. ZEMAIRA [Suspect]
     Active Substance: .ALPHA.1-PROTEINASE INHIBITOR HUMAN
     Indication: Alpha-1 antitrypsin deficiency
     Route: 065

REACTIONS (6)
  - Troponin increased [Not Recovered/Not Resolved]
  - Oxygen saturation decreased [Unknown]
  - Dyspnoea [Unknown]
  - Increased bronchial secretion [Unknown]
  - Sputum discoloured [Unknown]
  - Cough [Unknown]

NARRATIVE: CASE EVENT DATE: 20221231
